FAERS Safety Report 11215555 (Version 1)
Quarter: 2015Q2

REPORT INFORMATION
  Report Type: Report from Study
  Country: ES (occurrence: ES)
  Receive Date: 20150624
  Receipt Date: 20150624
  Transmission Date: 20150821
  Serious: Yes (Hospitalization)
  Sender: FDA-Public Use
  Company Number: ES-ROCHE-1595501

PATIENT
  Age: 74 Year
  Sex: Male
  Weight: 60 kg

DRUGS (9)
  1. METFORMIN HYDROCHLORIDE. [Concomitant]
     Active Substance: METFORMIN HYDROCHLORIDE
     Indication: DIABETES MELLITUS
     Route: 065
  2. NOLOTIL [Concomitant]
     Active Substance: METAMIZOLE
     Dosage: 2 GRAM/ 8 HOUR
     Route: 042
     Dates: start: 20150613
  3. ATROVENT [Concomitant]
     Active Substance: IPRATROPIUM BROMIDE
     Indication: RESPIRATORY TRACT INFECTION
     Dosage: 500 MICROGRAMS/ 8 HOURS
     Route: 065
     Dates: start: 20150422
  4. OBINUTUZUMAB [Suspect]
     Active Substance: OBINUTUZUMAB
     Indication: NON-HODGKIN^S LYMPHOMA UNSPECIFIED HISTOLOGY INDOLENT
     Dosage: DATE OF LAST DOSE 11/JUN/2015
     Route: 042
     Dates: start: 20141126
  5. NOLOTIL [Concomitant]
     Active Substance: METAMIZOLE
     Indication: RESPIRATORY TRACT INFECTION
     Dosage: 2 GRAM/ 8 HOUR
     Route: 042
     Dates: start: 20150422
  6. BENDAMUSTINE [Suspect]
     Active Substance: BENDAMUSTINE
     Indication: NON-HODGKIN^S LYMPHOMA UNSPECIFIED HISTOLOGY INDOLENT
     Dosage: DATE OF LAST DOSE 16/APR/2015
     Route: 042
     Dates: start: 20141126
  7. OMEPRAZOL [Concomitant]
     Active Substance: OMEPRAZOLE
     Indication: PROPHYLAXIS
     Route: 065
  8. ATORVASTATINE [Concomitant]
     Active Substance: ATORVASTATIN
     Indication: BLOOD CHOLESTEROL
     Route: 065
  9. URBASON [Concomitant]
     Active Substance: METHYLPREDNISOLONE
     Indication: RESPIRATORY TRACT INFECTION
     Route: 042
     Dates: start: 20150422

REACTIONS (1)
  - Febrile neutropenia [Recovering/Resolving]

NARRATIVE: CASE EVENT DATE: 20150611
